FAERS Safety Report 8773643 (Version 1)
Quarter: 2012Q4

REPORT INFORMATION
  Report Type: 
  Country: BR (occurrence: BR)
  Receive Date: 20120907
  Receipt Date: 20120907
  Transmission Date: 20130627
  Serious: Yes (Other)
  Sender: FDA-Public Use
  Company Number: PHHY2012BR076614

PATIENT
  Age: 48 Year
  Sex: Male
  Weight: 121.5 kg

DRUGS (16)
  1. RASILEZ [Suspect]
     Indication: HYPERTENSION
     Dosage: 150 mg, QD
     Route: 048
     Dates: end: 2011
  2. RASILEZ [Suspect]
     Indication: PROTEINURIA
  3. FUROSEMIDE [Concomitant]
     Dosage: 40 mg, BID
  4. PROPRANOLOL HYDROCHLORIDE [Concomitant]
     Dosage: 0.2 mg, BID
  5. ENALAPRIL [Concomitant]
     Dosage: 20 mg, BID
  6. LOSARTAN [Concomitant]
     Dosage: 100 mg, BID
  7. AMLODIPINE [Concomitant]
     Dosage: 10 mg, QD
  8. AMLODIPINE [Concomitant]
     Dosage: 5 mg, UNK
  9. ATENOLOL [Concomitant]
     Dosage: 100 mg, QD
  10. AAS [Concomitant]
     Dosage: 100 mg, UNK
  11. METFORMIN [Concomitant]
     Dosage: 850 mg, TID
  12. METFORMIN [Concomitant]
     Dosage: 850 mg, BID
  13. METFORMIN [Concomitant]
     Dosage: 500 mg, BID
  14. SIMVASTATIN [Concomitant]
     Dosage: 20 mg, QD
  15. NPH INSULIN [Concomitant]
  16. INSULIN [Concomitant]

REACTIONS (12)
  - Proteinuria [Recovered/Resolved]
  - Glycosylated haemoglobin increased [Recovered/Resolved]
  - Waist circumference increased [Recovered/Resolved]
  - Body mass index increased [Recovered/Resolved]
  - Urine sodium increased [Recovered/Resolved]
  - Blood 25-hydroxycholecalciferol decreased [Recovered/Resolved]
  - Haematocrit decreased [Recovered/Resolved]
  - Blood glucose increased [Recovered/Resolved]
  - Oedema peripheral [Recovered/Resolved]
  - Blood pressure systolic increased [Recovered/Resolved]
  - Haemoglobin decreased [Recovered/Resolved]
  - Diarrhoea [Recovered/Resolved]
